FAERS Safety Report 7935801-6 (Version None)
Quarter: 2011Q4

REPORT INFORMATION
  Report Type: 
  Country: None (occurrence: None)
  Receive Date: 20111123
  Receipt Date: 20111117
  Transmission Date: 20120403
  Serious: Yes (Other)
  Sender: FDA-Public Use
  Company Number: PHHY2011FR100544

PATIENT
  Sex: Male

DRUGS (4)
  1. MEDROL [Concomitant]
     Dosage: 4 MG, BID
  2. METHOTREXATE [Concomitant]
  3. CORTICOSTEROIDS [Concomitant]
  4. ONBREZ [Suspect]
     Indication: CHRONIC OBSTRUCTIVE PULMONARY DISEASE
     Dosage: 1 DF, QD
     Dates: start: 20110824

REACTIONS (2)
  - LOSS OF CONSCIOUSNESS [None]
  - COUGH [None]
